FAERS Safety Report 17450761 (Version 1)
Quarter: 2020Q1

REPORT INFORMATION
  Report Type: Spontaneous
  Country: US (occurrence: US)
  Receive Date: 20200224
  Receipt Date: 20200224
  Transmission Date: 20200409
  Serious: Yes (Death, Other)
  Sender: FDA-Public Use
  Company Number: US-TARO-2020TAR00275

PATIENT
  Age: 63 Year
  Sex: Female

DRUGS (2)
  1. ACETAMINOPHEN. [Suspect]
     Active Substance: ACETAMINOPHEN
     Indication: PRODUCT USED FOR UNKNOWN INDICATION
     Dosage: UNK
     Route: 065
  2. IBUPROFEN. [Suspect]
     Active Substance: IBUPROFEN
     Indication: PRODUCT USED FOR UNKNOWN INDICATION
     Dosage: UNK
     Route: 065

REACTIONS (10)
  - Acute kidney injury [Fatal]
  - Anion gap [Fatal]
  - Metabolic acidosis [Fatal]
  - Haemolysis [Fatal]
  - Coagulopathy [Fatal]
  - Respiratory depression [Fatal]
  - Hepatotoxicity [Fatal]
  - Coma [Fatal]
  - Toxicity to various agents [Fatal]
  - Acute lung injury [Fatal]
